FAERS Safety Report 8999452 (Version 1)
Quarter: 2013Q1

REPORT INFORMATION
  Report Type: Report from Study
  Country: HU (occurrence: HU)
  Receive Date: 20130103
  Receipt Date: 20130103
  Transmission Date: 20140127
  Serious: Yes (Other)
  Sender: FDA-Public Use
  Company Number: HU-ROCHE-1173413

PATIENT
  Age: 65 Year
  Sex: Female

DRUGS (3)
  1. CAPECITABINE [Suspect]
     Indication: BREAST CANCER
     Dosage: 2000MG PER DAY
     Route: 065
     Dates: start: 201206
  2. LAPATINIB [Suspect]
     Indication: BREAST CANCER
     Route: 065
     Dates: start: 201206
  3. NEBIVOLOL [Concomitant]
     Indication: ARRHYTHMIA
     Route: 065
     Dates: start: 2011

REACTIONS (3)
  - Haemorrhage [Recovering/Resolving]
  - Skin hypertrophy [Recovering/Resolving]
  - Pain of skin [Recovering/Resolving]
